FAERS Safety Report 23009856 (Version 2)
Quarter: 2023Q4

REPORT INFORMATION
  Report Type: Spontaneous
  Country: NZ (occurrence: NZ)
  Receive Date: 20230929
  Receipt Date: 20231002
  Transmission Date: 20240110
  Serious: Yes (Death)
  Sender: FDA-Public Use
  Company Number: NZ-MYLANLABS-2023M1103398

PATIENT
  Age: 72 Year
  Sex: Male

DRUGS (5)
  1. CLOZARIL [Suspect]
     Active Substance: CLOZAPINE
     Indication: Schizophrenia
     Dosage: UNK
     Route: 048
     Dates: start: 20210412
  2. DONEPEZIL [Concomitant]
     Active Substance: DONEPEZIL
     Indication: Product used for unknown indication
     Dosage: UNK
     Route: 065
  3. SINEMET [Concomitant]
     Active Substance: CARBIDOPA\LEVODOPA
     Indication: Product used for unknown indication
     Dosage: UNK
     Route: 065
  4. DOCUSATE SODIUM [Concomitant]
     Active Substance: DOCUSATE SODIUM
     Indication: Product used for unknown indication
     Dosage: UNK
     Route: 065
  5. CLONAZEPAM [Concomitant]
     Active Substance: CLONAZEPAM
     Indication: Product used for unknown indication
     Dosage: UNK
     Route: 065

REACTIONS (2)
  - Death [Fatal]
  - Asthenia [Fatal]

NARRATIVE: CASE EVENT DATE: 20230902
